FAERS Safety Report 9142294 (Version 1)
Quarter: 2013Q1

REPORT INFORMATION
  Report Type: Spontaneous
  Country: US (occurrence: US)
  Receive Date: 20130305
  Receipt Date: 20130305
  Transmission Date: 20140127
  Serious: Yes (Hospitalization)
  Sender: FDA-Public Use
  Company Number: US-AMGEN-USASP2013015115

PATIENT
  Age: 57 Year
  Sex: Male

DRUGS (1)
  1. ENBREL [Suspect]
     Indication: ANKYLOSING SPONDYLITIS
     Dosage: 50 MG, QWK
     Dates: start: 2009

REACTIONS (13)
  - Hip arthroplasty [Recovered/Resolved]
  - Fall [Not Recovered/Not Resolved]
  - Ligament rupture [Not Recovered/Not Resolved]
  - Back pain [Not Recovered/Not Resolved]
  - Dyspnoea [Not Recovered/Not Resolved]
  - Mobility decreased [Not Recovered/Not Resolved]
  - Musculoskeletal stiffness [Not Recovered/Not Resolved]
  - Headache [Not Recovered/Not Resolved]
  - Migraine [Not Recovered/Not Resolved]
  - Face injury [Not Recovered/Not Resolved]
  - Memory impairment [Not Recovered/Not Resolved]
  - Chest pain [Not Recovered/Not Resolved]
  - Influenza [Not Recovered/Not Resolved]
